FAERS Safety Report 6407777-4 (Version None)
Quarter: 2009Q4

REPORT INFORMATION
  Report Type: 
  Country: None (occurrence: None)
  Receive Date: 20091020
  Receipt Date: 20090922
  Transmission Date: 20100525
  Serious: No
  Sender: FDA-Public Use
  Company Number: US-BAUSCH-2009BL004783

PATIENT
  Age: 53 Year
  Sex: Female

DRUGS (2)
  1. DICLOFENAC SODIUM [Suspect]
     Indication: POSTOPERATIVE CARE
     Route: 047
     Dates: start: 20090811, end: 20090921
  2. PREDNISOLONE ACETATE [Concomitant]
     Route: 047
     Dates: start: 20090811

REACTIONS (1)
  - EYE PAIN [None]
